FAERS Safety Report 9833053 (Version 2)
Quarter: 2019Q2

REPORT INFORMATION
  Report Type: Spontaneous
  Country: BR (occurrence: BR)
  Receive Date: 20140121
  Receipt Date: 20190624
  Transmission Date: 20190711
  Serious: Yes (Other)
  Sender: FDA-Public Use
  Company Number: BR-PFIZER INC-2014014140

PATIENT
  Age: 71 Year
  Sex: Female
  Weight: 70 kg

DRUGS (4)
  1. LYRICA [Suspect]
     Active Substance: PREGABALIN
     Dosage: ONE TABLET PER DAY AT 20:00 HRS
     Dates: start: 2015
  2. ALPRAZOLAM. [Concomitant]
     Active Substance: ALPRAZOLAM
     Indication: INSOMNIA
     Dosage: UNK
  3. LYRICA [Suspect]
     Active Substance: PREGABALIN
     Indication: SPINAL PAIN
     Dosage: 75 MG (1 CAPSULE), 1X/DAY
     Route: 048
     Dates: start: 20130228
  4. DAFLON [Concomitant]
     Indication: CARDIOVASCULAR DISORDER
     Dosage: UNK

REACTIONS (9)
  - Cataract [Unknown]
  - Dysgraphia [Not Recovered/Not Resolved]
  - Stress [Unknown]
  - Pain [Unknown]
  - Reading disorder [Not Recovered/Not Resolved]
  - Spinal disorder [Unknown]
  - Nervous system disorder [Not Recovered/Not Resolved]
  - Gait disturbance [Not Recovered/Not Resolved]
  - Weight decreased [Unknown]

NARRATIVE: CASE EVENT DATE: 20130715
